FAERS Safety Report 7069993-0 (Version None)
Quarter: 2010Q4

REPORT INFORMATION
  Report Type: 
  Country: None (occurrence: None)
  Receive Date: 20101028
  Receipt Date: 20100802
  Transmission Date: 20110411
  Serious: No
  Sender: FDA-Public Use
  Company Number: US-WYE-H16699210

PATIENT
  Age: 77 Year
  Sex: Female
  Weight: 63.56 kg

DRUGS (1)
  1. ADVIL [Suspect]
     Indication: PAIN
     Dosage: ONE LIQUI-GEL ONCE
     Route: 048
     Dates: start: 20100801, end: 20100801

REACTIONS (1)
  - SWELLING FACE [None]
